FAERS Safety Report 23909894 (Version 2)
Quarter: 2025Q2

REPORT INFORMATION
  Report Type: Report from Study
  Country: CA (occurrence: CA)
  Receive Date: 20240528
  Receipt Date: 20250527
  Transmission Date: 20250717
  Serious: Yes (Other)
  Sender: TAKEDA
  Company Number: CA-TAKEDA-2024TUS044074

PATIENT
  Age: 62 Year
  Sex: Male

DRUGS (1)
  1. VEDOLIZUMAB [Suspect]
     Active Substance: VEDOLIZUMAB
     Indication: Colitis ulcerative

REACTIONS (2)
  - Anaplastic thyroid cancer [Recovering/Resolving]
  - BRAF gene mutation [Recovering/Resolving]

NARRATIVE: CASE EVENT DATE: 20240503
